FAERS Safety Report 21919820 (Version 1)
Quarter: 2023Q1

REPORT INFORMATION
  Report Type: Spontaneous
  Country: US (occurrence: US)
  Receive Date: 20230127
  Receipt Date: 20230127
  Transmission Date: 20230417
  Serious: Yes (Hospitalization)
  Sender: FDA-Public Use
  Company Number: US-002147023-NVSC2023US015958

PATIENT
  Age: 78 Year
  Sex: Male
  Weight: 78 kg

DRUGS (9)
  1. CLARITHROMYCIN [Suspect]
     Active Substance: CLARITHROMYCIN
     Indication: Mycobacterial infection
     Dosage: 0.5 MG
     Route: 065
  2. CEFOXITIN SODIUM [Suspect]
     Active Substance: CEFOXITIN SODIUM
     Indication: Mycobacterial infection
     Dosage: UNK
     Route: 065
  3. CIPROFLOXACIN [Suspect]
     Active Substance: CIPROFLOXACIN
     Indication: Mycobacterial infection
     Dosage: UNK
     Route: 065
  4. MOXIFLOXACIN [Suspect]
     Active Substance: MOXIFLOXACIN
     Indication: Mycobacterial infection
     Dosage: UNK
     Route: 065
  5. TOBRAMYCIN [Suspect]
     Active Substance: TOBRAMYCIN
     Indication: Mycobacterial infection
     Dosage: UNK
     Route: 065
  6. DOXYCYCLINE [Suspect]
     Active Substance: DOXYCYCLINE
     Indication: Mycobacterial infection
     Dosage: UNK
     Route: 065
  7. TIGECYCLINE [Suspect]
     Active Substance: TIGECYCLINE
     Indication: Mycobacterial infection
     Dosage: UNK
     Route: 065
  8. LINEZOLID [Suspect]
     Active Substance: LINEZOLID
     Indication: Mycobacterial infection
     Dosage: UNK
     Route: 065
  9. AMIKACIN [Suspect]
     Active Substance: AMIKACIN
     Indication: Mycobacterial infection
     Dosage: UNK
     Route: 065

REACTIONS (2)
  - Dyspnoea [Unknown]
  - Pleuritic pain [Unknown]

NARRATIVE: CASE EVENT DATE: 20221216
